FAERS Safety Report 8016948-5 (Version None)
Quarter: 2012Q1

REPORT INFORMATION
  Report Type: 
  Country: None (occurrence: None)
  Receive Date: 20120102
  Receipt Date: 20111225
  Transmission Date: 20120608
  Serious: Yes (Death, Hospitalization, Other)
  Sender: FDA-Public Use
  Company Number: PHHY2011JP112934

PATIENT
  Age: 73 Year
  Sex: Female

DRUGS (12)
  1. CYCLOSPORINE [Suspect]
     Indication: AUTOIMMUNE THROMBOCYTOPENIA
  2. DANAZOL [Concomitant]
     Indication: AUTOIMMUNE NEUTROPENIA
  3. CYCLOPHOSPHAMIDE [Concomitant]
     Indication: AUTOIMMUNE THROMBOCYTOPENIA
  4. FILGRASTIM [Concomitant]
     Indication: AUTOIMMUNE NEUTROPENIA
     Dosage: 300 UG/DAY
  5. POLYGAM S/D [Concomitant]
     Indication: AUTOIMMUNE NEUTROPENIA
     Dosage: UNK UKN, UNK
     Route: 042
  6. PREDNISOLONE [Concomitant]
     Indication: AUTOIMMUNE THROMBOCYTOPENIA
     Dosage: 40 MG/DAY
     Route: 048
  7. DANAZOL [Concomitant]
     Indication: AUTOIMMUNE THROMBOCYTOPENIA
     Dosage: UNK UKN, UNK
     Route: 048
  8. PREDNISOLONE [Concomitant]
     Indication: AUTOIMMUNE NEUTROPENIA
  9. FILGRASTIM [Concomitant]
     Indication: AUTOIMMUNE THROMBOCYTOPENIA
  10. POLYGAM S/D [Concomitant]
     Indication: AUTOIMMUNE THROMBOCYTOPENIA
  11. CYCLOSPORINE [Suspect]
     Indication: AUTOIMMUNE NEUTROPENIA
     Dosage: UNK UKN, UNK
  12. CYCLOPHOSPHAMIDE [Concomitant]
     Indication: AUTOIMMUNE NEUTROPENIA
     Dosage: 50 MG/DAY
     Route: 048

REACTIONS (8)
  - DRUG INEFFECTIVE [None]
  - PYREXIA [None]
  - FATIGUE [None]
  - ANAEMIA HAEMOLYTIC AUTOIMMUNE [None]
  - LYMPHOCYTE MORPHOLOGY ABNORMAL [None]
  - VIRAL LOAD INCREASED [None]
  - PNEUMONIA [None]
  - EPSTEIN-BARR VIRUS INFECTION [None]
